FAERS Safety Report 6211842-4 (Version None)
Quarter: 2009Q2

REPORT INFORMATION
  Report Type: 
  Country: None (occurrence: None)
  Receive Date: 20090602
  Receipt Date: 20090602
  Transmission Date: 20091009
  Serious: Yes (Other)
  Sender: FDA-Public Use
  Company Number: JP-PFIZER INC-2009195850

PATIENT
  Age: 67 Year

DRUGS (13)
  1. CELECOX [Suspect]
     Indication: PAIN IN EXTREMITY
     Dosage: 100 MG, 2X/DAY
     Route: 048
     Dates: start: 20090222, end: 20090304
  2. CYTOTEC [Suspect]
     Indication: PROPHYLAXIS AGAINST GASTROINTESTINAL ULCER
     Dosage: 200 MG, 2X/DAY
     Route: 048
     Dates: start: 20090222
  3. KINEDAK [Suspect]
     Indication: DIABETES MELLITUS
     Dosage: 50 MG, 3X/DAY
     Route: 048
     Dates: start: 20051128
  4. KINEDAK [Suspect]
     Dosage: UNK
  5. LOXONIN [Concomitant]
     Dosage: UNK
     Route: 062
     Dates: start: 20070305
  6. MAGNESIUM OXIDE [Concomitant]
     Dosage: UNK
     Route: 048
     Dates: start: 20080731
  7. LENDORMIN [Concomitant]
     Dosage: UNK
     Route: 048
     Dates: start: 20020111
  8. OPALMON [Concomitant]
     Dosage: UNK
     Route: 048
     Dates: start: 20060515
  9. NITOROL R [Concomitant]
     Dosage: UNK
     Route: 048
     Dates: start: 20090210
  10. DAONIL [Concomitant]
     Dosage: UNK
     Route: 048
     Dates: start: 20020304
  11. MIGLITOL [Concomitant]
     Dosage: UNK
     Route: 048
     Dates: start: 20090114
  12. CYANOCOBALAMIN [Concomitant]
     Dosage: UNK
     Route: 048
     Dates: start: 20060515
  13. MAGMITT [Concomitant]
     Dosage: UNK
     Dates: start: 20081114

REACTIONS (2)
  - ANGINA PECTORIS [None]
  - CERVICAL MYELOPATHY [None]
